FAERS Safety Report 4513933-2 (Version None)
Quarter: 2004Q4

REPORT INFORMATION
  Report Type: 
  Country: None (occurrence: None)
  Receive Date: 20041130
  Receipt Date: 20041004
  Transmission Date: 20050328
  Serious: No
  Sender: FDA-Public Use
  Company Number: US-GLAXOSMITHKLINE-A0528385A

PATIENT
  Age: 77 Year
  Sex: Male
  Weight: 70.5 kg

DRUGS (4)
  1. WELLBUTRIN XL [Suspect]
     Indication: DEPRESSION
     Dosage: 300MG PER DAY
     Route: 048
     Dates: start: 20040929, end: 20041002
  2. SINEMET [Concomitant]
  3. CLONAZEPAM [Concomitant]
  4. REMERON [Concomitant]

REACTIONS (2)
  - ABDOMINAL PAIN [None]
  - FEELING ABNORMAL [None]
